FAERS Safety Report 13656051 (Version 27)
Quarter: 2020Q2

REPORT INFORMATION
  Report Type: Spontaneous
  Country: CA (occurrence: CA)
  Receive Date: 20170615
  Receipt Date: 20200427
  Transmission Date: 20200713
  Serious: Yes (Hospitalization, Other)
  Sender: FDA-Public Use
  Company Number: CA-CELLTRION INC.-2017CA006338

PATIENT

DRUGS (34)
  1. INFLECTRA [Suspect]
     Active Substance: INFLIXIMAB-DYYB
     Dosage: 500 MG, EVERY 4 WEEKS
     Route: 042
     Dates: start: 20180302
  2. INFLECTRA [Suspect]
     Active Substance: INFLIXIMAB-DYYB
     Dosage: 563 MG EVERY 4 WEEKS
     Route: 042
     Dates: start: 20200417
  3. INFLECTRA [Suspect]
     Active Substance: INFLIXIMAB-DYYB
     Dosage: 500 MG, EVERY 4 WEEKS
     Route: 042
     Dates: start: 20180328, end: 20180328
  4. INFLECTRA [Suspect]
     Active Substance: INFLIXIMAB-DYYB
     Dosage: UNK
     Route: 042
     Dates: start: 20181010, end: 20181010
  5. INFLECTRA [Suspect]
     Active Substance: INFLIXIMAB-DYYB
     Dosage: 563 MG EVERY 4 WEEKS
     Route: 042
     Dates: start: 20190225, end: 20190225
  6. INFLECTRA [Suspect]
     Active Substance: INFLIXIMAB-DYYB
     Dosage: 563 MG EVERY 4 WEEKS
     Route: 042
     Dates: start: 20190417, end: 20190417
  7. VIT D [Concomitant]
     Active Substance: VITAMIN D NOS
     Dosage: UNK
     Route: 065
  8. INFLECTRA [Suspect]
     Active Substance: INFLIXIMAB-DYYB
     Dosage: 563 MG, EVERY 4 WEEKS
     Route: 042
     Dates: start: 20180614, end: 20190417
  9. CIPROFLOXACIN. [Concomitant]
     Active Substance: CIPROFLOXACIN
     Dosage: UNK
     Route: 048
  10. INFLECTRA [Suspect]
     Active Substance: INFLIXIMAB-DYYB
     Dosage: 5 MG/KG, Q 0, 2, 6 WEEKS, THEN EVERY 8 WEEKS
     Route: 042
     Dates: start: 20170209, end: 20170321
  11. INFLECTRA [Suspect]
     Active Substance: INFLIXIMAB-DYYB
     Dosage: 600 MG, (BOOSTER DOSE, 4 WEEKS FROM 21MAR2017)
     Route: 042
     Dates: start: 20170420, end: 20170420
  12. INFLECTRA [Suspect]
     Active Substance: INFLIXIMAB-DYYB
     Dosage: 500 MG, EVERY 4 WEEKS
     Route: 042
     Dates: start: 20180103, end: 20180103
  13. INFLECTRA [Suspect]
     Active Substance: INFLIXIMAB-DYYB
     Dosage: 500 MG, EVERY 4 WEEKS
     Route: 042
     Dates: end: 20180302
  14. INFLECTRA [Suspect]
     Active Substance: INFLIXIMAB-DYYB
     Dosage: 500 MG, EVERY 4 WEEKS
     Route: 042
     Dates: start: 20180426, end: 20180426
  15. INFLECTRA [Suspect]
     Active Substance: INFLIXIMAB-DYYB
     Dosage: UNK
     Route: 042
     Dates: start: 20181031, end: 20181031
  16. INFLECTRA [Suspect]
     Active Substance: INFLIXIMAB-DYYB
     Dosage: 7.5 MG/KG, EVERY 4 WEEKS
     Route: 042
     Dates: start: 20190510
  17. INFLECTRA [Suspect]
     Active Substance: INFLIXIMAB-DYYB
     Dosage: 563 MG EVERY 4 WEEKS
     Route: 042
     Dates: start: 20190510, end: 20190510
  18. INFLECTRA [Suspect]
     Active Substance: INFLIXIMAB-DYYB
     Dosage: 563 MG EVERY 4 WEEKS
     Route: 042
     Dates: start: 20190806
  19. PREDNISONE /00044702/ [Concomitant]
     Active Substance: PREDNISONE
     Dosage: 5 MG, UNK
     Route: 065
  20. INFLECTRA [Suspect]
     Active Substance: INFLIXIMAB-DYYB
     Dosage: 500 MG, EVERY 4 WEEKS
     Route: 042
     Dates: start: 20180131, end: 20180131
  21. INFLECTRA [Suspect]
     Active Substance: INFLIXIMAB-DYYB
     Dosage: 563 MG EVERY 4 WEEKS
     Route: 042
     Dates: start: 20200316
  22. INFLECTRA [Suspect]
     Active Substance: INFLIXIMAB-DYYB
     Dosage: 500 MG, EVERY 4 WEEKS
     Route: 042
     Dates: start: 20171106, end: 20171106
  23. INFLECTRA [Suspect]
     Active Substance: INFLIXIMAB-DYYB
     Dosage: 500 MG, EVERY 4 WEEKS
     Route: 042
     Dates: start: 20171207, end: 20171207
  24. INFLECTRA [Suspect]
     Active Substance: INFLIXIMAB-DYYB
     Dosage: 563 MG EVERY 4 WEEKS
     Route: 042
     Dates: start: 20190320, end: 20190320
  25. INFLECTRA [Suspect]
     Active Substance: INFLIXIMAB-DYYB
     Dosage: 563 MG EVERY 4 WEEKS
     Route: 042
     Dates: start: 20200213
  26. ASPIRIN. [Concomitant]
     Active Substance: ASPIRIN
     Dosage: UNK
  27. INFLECTRA [Suspect]
     Active Substance: INFLIXIMAB-DYYB
     Indication: CROHN^S DISEASE
     Dosage: 300 MG, EVERY 4 WEEKS
     Route: 042
     Dates: start: 20170209, end: 20170516
  28. INFLECTRA [Suspect]
     Active Substance: INFLIXIMAB-DYYB
     Dosage: 500 MG, EVERY 4 WEEKS
     Route: 042
     Dates: start: 20171004, end: 20180518
  29. VITAMIN B12 [Concomitant]
     Active Substance: CYANOCOBALAMIN
     Dosage: UNK
     Route: 065
  30. INFLECTRA [Suspect]
     Active Substance: INFLIXIMAB-DYYB
     Dosage: 300 MG, EVERY 4 WEEKS
     Route: 042
     Dates: start: 20170516, end: 20170914
  31. INFLECTRA [Suspect]
     Active Substance: INFLIXIMAB-DYYB
     Dosage: 563 MG, EVERY 4 WEEKS
     Route: 042
     Dates: start: 20180614, end: 20180614
  32. INFLECTRA [Suspect]
     Active Substance: INFLIXIMAB-DYYB
     Dosage: 563 MG EVERY 4 WEEKS
     Route: 042
     Dates: start: 20190930
  33. CALCIUM [Concomitant]
     Active Substance: CALCIUM
     Dosage: UNK
     Route: 065
  34. HYDROMORPHONE [Concomitant]
     Active Substance: HYDROMORPHONE
     Dosage: UNK
     Route: 065
     Dates: start: 20160116

REACTIONS (13)
  - Hypotension [Unknown]
  - Pharyngitis streptococcal [Recovered/Resolved]
  - Inappropriate schedule of product administration [Unknown]
  - Condition aggravated [Recovering/Resolving]
  - Incision site complication [Unknown]
  - Drug level decreased [Unknown]
  - Anal abscess [Recovered/Resolved]
  - Blood pressure fluctuation [Unknown]
  - Off label use [Unknown]
  - Intentional product use issue [Unknown]
  - Cough [Recovered/Resolved]
  - Colitis [Not Recovered/Not Resolved]
  - Furuncle [Not Recovered/Not Resolved]

NARRATIVE: CASE EVENT DATE: 2017
